FAERS Safety Report 5676925-6 (Version None)
Quarter: 2008Q1

REPORT INFORMATION
  Report Type: 
  Country: None (occurrence: None)
  Receive Date: 20080324
  Receipt Date: 20080317
  Transmission Date: 20080703
  Serious: Yes (Death, Hospitalization)
  Sender: FDA-Public Use
  Company Number: FR-BRISTOL-MYERS SQUIBB COMPANY-14121826

PATIENT
  Age: 83 Year
  Sex: Female

DRUGS (11)
  1. ERBITUX [Suspect]
     Indication: COLON CANCER STAGE III
     Route: 042
     Dates: end: 20071221
  2. NEXIUM [Concomitant]
  3. ALUMINUM HYDROXIDE AND MAGNESIUM TRISILICATE [Concomitant]
  4. MOTILIUM [Concomitant]
     Route: 048
  5. STILNOX [Concomitant]
     Route: 048
  6. ASPEGIC 1000 [Concomitant]
     Route: 048
  7. DEROXAT [Concomitant]
     Route: 048
  8. SPASFON [Concomitant]
     Route: 048
  9. TEMESTA [Concomitant]
     Route: 048
  10. DURAGESIC-100 [Concomitant]
     Route: 062
  11. ACTISKENAN CAPS [Concomitant]
     Route: 048

REACTIONS (4)
  - ASTHENIA [None]
  - DISSEMINATED INTRAVASCULAR COAGULATION [None]
  - HAEMOGLOBIN DECREASED [None]
  - INFECTION [None]
